FAERS Safety Report 12970048 (Version 2)
Quarter: 2017Q1

REPORT INFORMATION
  Report Type: Spontaneous
  Country: FR (occurrence: FR)
  Receive Date: 20161123
  Receipt Date: 20170118
  Transmission Date: 20170428
  Serious: Yes (Hospitalization)
  Sender: FDA-Public Use
  Company Number: FR-PFIZER INC-2016537042

PATIENT
  Age: 87 Year
  Sex: Female

DRUGS (10)
  1. PANTOPRAZOLE [Concomitant]
     Active Substance: PANTOPRAZOLE SODIUM
     Dosage: UNK
  2. BISOPROLOL FUMARATE. [Concomitant]
     Active Substance: BISOPROLOL FUMARATE
     Indication: CARDIAC FAILURE
     Dosage: 1 DF, 1X/DAY ON THE MORNING
     Route: 048
  3. CORDARONE [Concomitant]
     Active Substance: AMIODARONE HYDROCHLORIDE
     Indication: ATRIAL FIBRILLATION
     Dosage: 200 MG, 1X/DAY IN THE MORNING
     Route: 048
  4. XANAX [Suspect]
     Active Substance: ALPRAZOLAM
     Indication: INSOMNIA
     Dosage: UNK
     Route: 048
     Dates: end: 20160801
  5. COUMADINE [Concomitant]
     Active Substance: WARFARIN SODIUM
     Dosage: 0.75 MG,  DAILY
  6. DOLIPRANE [Concomitant]
     Active Substance: ACETAMINOPHEN
     Dosage: UNK UNK, AS NEEDED
  7. LAMALINE [Suspect]
     Active Substance: ACETAMINOPHEN\CAFFEINE\OPIUM
     Indication: BONE PAIN
     Dosage: UNK
     Route: 048
     Dates: end: 20160801
  8. RAMIPRIL. [Concomitant]
     Active Substance: RAMIPRIL
     Indication: CARDIAC FAILURE
     Dosage: 2.5 MG, 1X/DAY AT MIDDAY
     Route: 048
  9. FUROSEMIDE. [Concomitant]
     Active Substance: FUROSEMIDE
     Dosage: 1 DF, DAILY
  10. KARDEGIC [Concomitant]
     Active Substance: ASPIRIN LYSINE
     Dosage: UNK

REACTIONS (11)
  - Somnolence [Recovered/Resolved]
  - Amnesia [Unknown]
  - Decreased appetite [Unknown]
  - Spinal column injury [Unknown]
  - Disorientation [Unknown]
  - Fall [Recovered/Resolved]
  - Bradycardia [Unknown]
  - Affective disorder [Unknown]
  - Asthenia [Unknown]
  - Acute kidney injury [Unknown]
  - Injury [Unknown]

NARRATIVE: CASE EVENT DATE: 20160730
